FAERS Safety Report 4422170-1 (Version None)
Quarter: 2004Q3

REPORT INFORMATION
  Report Type: 
  Country: None (occurrence: None)
  Receive Date: 20040712
  Receipt Date: 20031111
  Transmission Date: 20050211
  Serious: Yes (Hospitalization)
  Sender: FDA-Public Use
  Company Number: TAP2003Q02630

PATIENT
  Age: 57 Year
  Sex: Female
  Weight: 54.4316 kg

DRUGS (2)
  1. PREVACID [Suspect]
     Indication: GASTROOESOPHAGEAL REFLUX DISEASE
     Dosage: 30 MG, 3 IN 1 D, PER ORAL
     Route: 048
     Dates: start: 20000101, end: 20010101
  2. UNSPECIFIED THYROID (THYROID) [Concomitant]

REACTIONS (3)
  - ABDOMINAL PAIN UPPER [None]
  - PANCREATITIS [None]
  - RASH [None]
